FAERS Safety Report 12685705 (Version 1)
Quarter: 2016Q3

REPORT INFORMATION
  Report Type: Report from Study
  Country: CA (occurrence: CA)
  Receive Date: 20160825
  Receipt Date: 20160825
  Transmission Date: 20161109
  Serious: Yes (Life-Threatening, Hospitalization)
  Sender: FDA-Public Use
  Company Number: CA-JNJFOC-20160816144

PATIENT
  Age: 42 Year
  Sex: Female
  Weight: 56.8 kg

DRUGS (5)
  1. REMICADE [Suspect]
     Active Substance: INFLIXIMAB
     Indication: COLITIS ULCERATIVE
     Route: 042
     Dates: start: 20160819
  2. REMICADE [Suspect]
     Active Substance: INFLIXIMAB
     Indication: COLITIS ULCERATIVE
     Route: 042
  3. BENADRYL [Suspect]
     Active Substance: DIPHENHYDRAMINE HYDROCHLORIDE
     Indication: PRODUCT USED FOR UNKNOWN INDICATION
     Route: 042
     Dates: start: 20160819
  4. IMURAN [Concomitant]
     Active Substance: AZATHIOPRINE
     Dosage: 2 TABS DAILY
     Route: 065
  5. PLAQUENIL [Concomitant]
     Active Substance: HYDROXYCHLOROQUINE SULFATE
     Dosage: 2 TABS FROM MONDAY TO FRIDAY
     Route: 065

REACTIONS (11)
  - Off label use [Unknown]
  - Chest discomfort [Recovering/Resolving]
  - Hypoaesthesia [Unknown]
  - Tremor [Unknown]
  - Infusion related reaction [Recovering/Resolving]
  - Flushing [Recovering/Resolving]
  - Urticaria [Not Recovered/Not Resolved]
  - Throat tightness [Recovering/Resolving]
  - Pruritus [Not Recovered/Not Resolved]
  - Hypotension [Recovered/Resolved]
  - Product use issue [Unknown]

NARRATIVE: CASE EVENT DATE: 20160819
